FAERS Safety Report 8353863-1 (Version None)
Quarter: 2012Q2

REPORT INFORMATION
  Report Type: 
  Country: None (occurrence: None)
  Receive Date: 20120511
  Receipt Date: 20120119
  Transmission Date: 20120825
  Serious: No
  Sender: FDA-Public Use
  Company Number: US-GLAXOSMITHKLINE-A0962696A

PATIENT
  Age: 84 Year
  Sex: Female

DRUGS (7)
  1. ACTONEL [Concomitant]
  2. HERCEPTIN [Suspect]
     Indication: BREAST CANCER
  3. CITRACAL + D [Concomitant]
  4. TYKERB [Suspect]
     Indication: BREAST CANCER
     Dosage: 1000MG PER DAY
     Route: 048
     Dates: start: 20111006
  5. MULTI-VITAMINS [Concomitant]
  6. LOVAZA [Concomitant]
  7. VITAMIN B COMPLEX CAP [Concomitant]

REACTIONS (18)
  - BACK PAIN [None]
  - DRY MOUTH [None]
  - DRY SKIN [None]
  - MUSCULOSKELETAL PAIN [None]
  - SCIATICA [None]
  - FREQUENT BOWEL MOVEMENTS [None]
  - DYSURIA [None]
  - VULVOVAGINAL DRYNESS [None]
  - NEURALGIA [None]
  - MILIA [None]
  - RASH [None]
  - ACNE [None]
  - MOVEMENT DISORDER [None]
  - FATIGUE [None]
  - VULVOVAGINAL DISCOMFORT [None]
  - SNEEZING [None]
  - SPINAL PAIN [None]
  - MOUTH ULCERATION [None]
